FAERS Safety Report 17149449 (Version 1)
Quarter: 2019Q4

REPORT INFORMATION
  Report Type: Spontaneous
  Country: US (occurrence: US)
  Receive Date: 20191213
  Receipt Date: 20191213
  Transmission Date: 20200122
  Serious: Yes (Hospitalization)
  Sender: FDA-Public Use
  Company Number: US-TEVA-2019-US-1152168

PATIENT
  Sex: Female

DRUGS (1)
  1. MODAFINIL. [Suspect]
     Active Substance: MODAFINIL
     Route: 065
     Dates: start: 201908

REACTIONS (4)
  - Inflammation [Unknown]
  - Mastectomy [Unknown]
  - Alanine aminotransferase increased [Unknown]
  - Wrong technique in product usage process [Unknown]
